FAERS Safety Report 8810022 (Version 2)
Quarter: 2013Q1

REPORT INFORMATION
  Report Type: Spontaneous
  Country: GB (occurrence: GB)
  Receive Date: 20120926
  Receipt Date: 20130321
  Transmission Date: 20140127
  Serious: Yes (Death, Other)
  Sender: FDA-Public Use
  Company Number: PHHY2012GB078662

PATIENT
  Age: 40 Year
  Sex: Female

DRUGS (2)
  1. ARIPIPRAZOLE [Suspect]
     Indication: SCHIZOPHRENIA
     Dosage: 15 MG, QD
     Route: 048
     Dates: start: 20110629
  2. MIRTAZAPINE [Suspect]
     Indication: DEPRESSION
     Dosage: 1 DF, QD
     Route: 048
     Dates: start: 20110615, end: 20120621

REACTIONS (2)
  - Pulmonary embolism [Fatal]
  - Deep vein thrombosis [Unknown]
